FAERS Safety Report 6402378-6 (Version None)
Quarter: 2009Q4

REPORT INFORMATION
  Report Type: 
  Country: None (occurrence: None)
  Receive Date: 20091013
  Receipt Date: 20091007
  Transmission Date: 20100525
  Serious: Yes (Other)
  Sender: FDA-Public Use
  Company Number: 1000009302

PATIENT
  Age: 21 Year
  Sex: Male
  Weight: 83.4619 kg

DRUGS (3)
  1. LEXAPRO [Suspect]
     Dosage: ORAL
     Route: 048
     Dates: end: 20090908
  2. SYMBYAX (TABLETS) [Suspect]
     Dosage: 6/25 MG
     Dates: start: 20090909, end: 20090909
  3. WELLBUTRIN [Suspect]
     Dosage: ORAL
     Route: 048
     Dates: end: 20090908

REACTIONS (4)
  - ANXIETY [None]
  - BLOOD PRESSURE INCREASED [None]
  - CONVULSION [None]
  - DEPRESSION [None]
